FAERS Safety Report 6248200-2 (Version None)
Quarter: 2009Q2

REPORT INFORMATION
  Report Type: 
  Country: None (occurrence: None)
  Receive Date: 20090629
  Receipt Date: 20090623
  Transmission Date: 20091009
  Serious: Yes (Hospitalization)
  Sender: FDA-Public Use
  Company Number: GB-WYE-G03907109

PATIENT
  Age: 63 Year
  Sex: Male

DRUGS (7)
  1. ANADIN IBUPROFEN [Suspect]
     Indication: DRUG USE FOR UNKNOWN INDICATION
     Route: 048
     Dates: start: 20090420, end: 20090602
  2. CYCLIZINE [Concomitant]
     Route: 048
  3. OXYCONTIN [Concomitant]
     Route: 048
  4. OMEPRAZOLE [Concomitant]
     Route: 048
  5. OXYCODONE HCL [Concomitant]
     Dosage: 10 MG EVERY 1 TOT
     Route: 048
  6. PREDNISOLONE [Suspect]
     Indication: DRUG USE FOR UNKNOWN INDICATION
     Dosage: UNKNOWN
  7. DIAZEPAM [Concomitant]
     Route: 048

REACTIONS (1)
  - RENAL IMPAIRMENT [None]
